FAERS Safety Report 20426543 (Version 1)
Quarter: 2022Q1

REPORT INFORMATION
  Report Type: Report from Study
  Country: US (occurrence: US)
  Receive Date: 20220204
  Receipt Date: 20220204
  Transmission Date: 20220423
  Serious: No
  Sender: FDA-Public Use
  Company Number: US-EXELIXIS-CABO-21045252

PATIENT
  Age: 75 Year
  Sex: Female

DRUGS (2)
  1. CABOMETYX [Suspect]
     Active Substance: CABOZANTINIB S-MALATE
     Indication: Renal cancer
     Dosage: 40 MG, QD
     Route: 048
     Dates: start: 20210921, end: 202111
  2. CABOMETYX [Suspect]
     Active Substance: CABOZANTINIB S-MALATE
     Indication: Breast cancer female

REACTIONS (11)
  - Mastication disorder [Unknown]
  - Ageusia [Unknown]
  - Dizziness [Unknown]
  - Constipation [Unknown]
  - Headache [Unknown]
  - Fatigue [Unknown]
  - Hypertension [Unknown]
  - Stomatitis [Unknown]
  - Decreased appetite [Unknown]
  - Muscle spasms [Unknown]
  - Weight decreased [Unknown]

NARRATIVE: CASE EVENT DATE: 20210923
